FAERS Safety Report 20652474 (Version 2)
Quarter: 2022Q2

REPORT INFORMATION
  Report Type: Report from Study
  Country: NL (occurrence: NL)
  Receive Date: 20220330
  Receipt Date: 20220418
  Transmission Date: 20220721
  Serious: Yes (Death)
  Sender: FDA-Public Use
  Company Number: NL-NOVARTISPH-NVSC2022NL071618

PATIENT
  Age: 82 Year
  Sex: Female
  Weight: 58.2 kg

DRUGS (13)
  1. ACLASTA [Suspect]
     Active Substance: ZOLEDRONIC ACID
     Indication: Osteoporosis
     Dosage: 5 MG, ONCE/SINGLE , (5 MG/100 ML, 0.05 MG/ML VIAL 100 ML)(1X PER 52 WEEKS)
     Route: 042
     Dates: start: 20210219
  2. DEXAGENTA-POS [Concomitant]
     Indication: Eye disorder
     Dosage: 1 DRP, BID (EYE DROPS VIAL 5 ML)
     Route: 047
  3. BROMFENAC SODIUM [Concomitant]
     Active Substance: BROMFENAC SODIUM
     Indication: Eye disorder
     Dosage: 1 DRP, BID (0.9 MG/ML VIAL 5 ML)
     Route: 047
  4. HALDOL [Concomitant]
     Active Substance: HALOPERIDOL
     Indication: Product used for unknown indication
     Dosage: 5 DRP, QD (2 MG/ML,
     Route: 048
  5. D CURA [Concomitant]
     Indication: Product used for unknown indication
     Dosage: 25000 IU, QW (1 PIECE ONLY ON TUESDAY)
     Route: 048
  6. MIRTAZAPINE [Concomitant]
     Active Substance: MIRTAZAPINE
     Indication: Product used for unknown indication
     Dosage: 0.5 DOSAGE FORM, QD
     Route: 048
  7. ACETAMINOPHEN [Concomitant]
     Active Substance: ACETAMINOPHEN
     Indication: Product used for unknown indication
     Dosage: 500 MG, BID
     Route: 048
  8. PANTOPRAZOLE SODIUM [Concomitant]
     Active Substance: PANTOPRAZOLE SODIUM
     Indication: Product used for unknown indication
     Dosage: 20 MG, QD
     Route: 048
  9. FUROSEMIDE CF [Concomitant]
     Indication: Product used for unknown indication
     Dosage: 40 MG, QD
     Route: 048
  10. ELIQUIS [Concomitant]
     Active Substance: APIXABAN
     Indication: Product used for unknown indication
     Dosage: 5 MG, BID
     Route: 048
  11. CITALOPRAM HYDROBROMIDE [Concomitant]
     Active Substance: CITALOPRAM HYDROBROMIDE
     Indication: Product used for unknown indication
     Dosage: 20 MG, QD
     Route: 048
  12. CARVEDILOL [Concomitant]
     Active Substance: CARVEDILOL
     Indication: Product used for unknown indication
     Dosage: 12.5 MG, BID
     Route: 048
  13. EUTHYROX [Concomitant]
     Active Substance: LEVOTHYROXINE SODIUM
     Indication: Product used for unknown indication
     Dosage: 1 DOSAGE FORM, QD (50 MCG)
     Route: 048

REACTIONS (7)
  - Anaemia [Fatal]
  - Blood loss anaemia [Fatal]
  - Serum ferritin decreased [Fatal]
  - Stoma site haemorrhage [Fatal]
  - Ileus [Fatal]
  - Hernia [Fatal]
  - Hip fracture [Fatal]

NARRATIVE: CASE EVENT DATE: 20220101
